FAERS Safety Report 7986150 (Version 3)
Quarter: 2014Q1

REPORT INFORMATION
  Report Type: Spontaneous
  Country: US (occurrence: US)
  Receive Date: 20110610
  Receipt Date: 20140321
  Transmission Date: 20141002
  Serious: Yes (Hospitalization, Other)
  Sender: FDA-Public Use
  Company Number: US-ASTRAZENECA-2011SE33966

PATIENT
  Age: 49 Year
  Sex: Female
  Weight: 131.5 kg

DRUGS (16)
  1. NEXIUM [Suspect]
     Indication: GASTROOESOPHAGEAL REFLUX DISEASE
     Route: 048
     Dates: start: 2001, end: 20140313
  2. MORPHINE [Suspect]
     Route: 042
     Dates: start: 2008, end: 2008
  3. NIFEDICAL [Concomitant]
     Indication: BLOOD PRESSURE ABNORMAL
     Route: 048
  4. LOSARTAN POTASSIUM [Concomitant]
     Indication: BLOOD PRESSURE ABNORMAL
     Route: 048
     Dates: start: 2008
  5. ASPIRIN [Concomitant]
     Indication: ANTICOAGULANT THERAPY
     Route: 048
     Dates: start: 2008
  6. CITALOPRAM [Concomitant]
     Indication: DEPRESSION
     Route: 048
     Dates: start: 2008
  7. FUROSEMIDE [Concomitant]
     Indication: DIURETIC THERAPY
     Route: 048
     Dates: start: 2008
  8. METOPROLOL TARTRATE [Concomitant]
     Indication: CARDIAC DISORDER
     Route: 048
     Dates: start: 2008
  9. OTC MAGNESIUM [Concomitant]
     Indication: MINERAL SUPPLEMENTATION
     Route: 048
     Dates: start: 2008
  10. WARFARIN SODIUM [Concomitant]
     Indication: ANTICOAGULANT THERAPY
     Dosage: 5MG ALT WITH 7.5 MG HS
     Route: 048
     Dates: start: 2008
  11. DIAZEPAM [Concomitant]
     Indication: SLEEP DISORDER
     Route: 048
     Dates: start: 2008
  12. HYDROXYZINE [Concomitant]
     Indication: HYPERSENSITIVITY
     Route: 048
     Dates: start: 2000
  13. TRAMADOL [Concomitant]
     Indication: ARTHRITIS
     Dosage: 50 MG , TID PRN
     Route: 048
     Dates: start: 2008
  14. TRAZADONE [Concomitant]
     Indication: SLEEP DISORDER
     Route: 048
     Dates: start: 2008
  15. NITROSTAT [Concomitant]
     Indication: CHEST PAIN
     Dosage: 0.01, PRN
     Route: 048
     Dates: start: 2008
  16. NEBULIZER [Concomitant]
     Indication: HYPERSENSITIVITY
     Dosage: PRN
     Route: 055
     Dates: start: 2000

REACTIONS (7)
  - Cerebrovascular accident [Unknown]
  - Cartilage injury [Unknown]
  - Local swelling [Unknown]
  - Drug hypersensitivity [Unknown]
  - Dissociation [Unknown]
  - Nervous system disorder [Unknown]
  - Drug dose omission [Unknown]
